FAERS Safety Report 23039581 (Version 1)
Quarter: 2023Q4

REPORT INFORMATION
  Report Type: Spontaneous
  Country: FR (occurrence: FR)
  Receive Date: 20231006
  Receipt Date: 20231006
  Transmission Date: 20240109
  Serious: Yes (Other)
  Sender: FDA-Public Use
  Company Number: None

PATIENT
  Age: 54 Year
  Sex: Male

DRUGS (2)
  1. OFLOXACIN [Suspect]
     Active Substance: OFLOXACIN
     Indication: Urinary tract infection
     Route: 065
     Dates: start: 20230707, end: 20230717
  2. PACLITAXEL [Concomitant]
     Active Substance: PACLITAXEL
     Indication: Lung adenocarcinoma stage IV
     Dates: start: 20201217

REACTIONS (1)
  - Enthesopathy [Not Recovered/Not Resolved]
